FAERS Safety Report 6039766-6 (Version None)
Quarter: 2009Q1

REPORT INFORMATION
  Report Type: 
  Country: None (occurrence: None)
  Receive Date: 20090116
  Receipt Date: 20090115
  Transmission Date: 20090719
  Serious: Yes (Life-Threatening, Other)
  Sender: FDA-Public Use
  Company Number: CA-ASTRAZENECA-2009UW01270

PATIENT
  Age: 6 Week
  Sex: Male
  Weight: 5 kg

DRUGS (5)
  1. EMLA [Suspect]
     Route: 061
  2. ACETAMINOPHEN [Concomitant]
     Route: 048
  3. CEFAZOLIN [Concomitant]
     Route: 042
  4. CORTISONE ACETATE TAB [Concomitant]
  5. LIDOCAINE 2% [Concomitant]

REACTIONS (8)
  - BLOOD METHAEMOGLOBIN PRESENT [None]
  - CRYING [None]
  - HAEMOGLOBIN DECREASED [None]
  - LIP DISCOLOURATION [None]
  - MALAISE [None]
  - PALLOR [None]
  - RASH [None]
  - SCAB [None]
